FAERS Safety Report 9993092 (Version 1)
Quarter: 2014Q1

REPORT INFORMATION
  Report Type: Spontaneous
  Country: US (occurrence: US)
  Receive Date: 20140310
  Receipt Date: 20140310
  Transmission Date: 20141002
  Serious: Yes (Other)
  Sender: FDA-Public Use
  Company Number: US-ABBVIE-13P-163-1177247-00

PATIENT
  Sex: 0

DRUGS (2)
  1. LUPRON DEPOT [Suspect]
     Indication: ENDOMETRIOSIS
  2. LUPRON DEPOT [Suspect]
     Dates: start: 20100414

REACTIONS (4)
  - Endometriosis [Unknown]
  - Hot flush [Unknown]
  - Headache [Unknown]
  - Emotional disorder [Unknown]
